FAERS Safety Report 5122959-X (Version None)
Quarter: 2006Q4

REPORT INFORMATION
  Report Type: 
  Country: None (occurrence: None)
  Receive Date: 20061005
  Receipt Date: 20060922
  Transmission Date: 20070319
  Serious: No
  Sender: FDA-Public Use
  Company Number: 2006117784

PATIENT
  Sex: 0

DRUGS (2)
  1. VARENICLINE                           (VARENICLINE) [Suspect]
     Indication: DRUG USE FOR UNKNOWN INDICATION
  2. REQUIP [Suspect]
     Indication: DRUG USE FOR UNKNOWN INDICATION

REACTIONS (2)
  - FEELING ABNORMAL [None]
  - HALLUCINATION, AUDITORY [None]
